FAERS Safety Report 14419802 (Version 1)
Quarter: 2018Q1

REPORT INFORMATION
  Report Type: Spontaneous
  Country: JP (occurrence: JP)
  Receive Date: 20180122
  Receipt Date: 20180122
  Transmission Date: 20180509
  Serious: Yes (Other)
  Sender: FDA-Public Use
  Company Number: JP-PFIZER INC-2018026501

PATIENT

DRUGS (2)
  1. WARFARIN [Concomitant]
     Active Substance: WARFARIN
  2. CELECOX [Suspect]
     Active Substance: CELECOXIB
     Dosage: 100 MG, UNK
     Route: 048

REACTIONS (1)
  - Haemorrhage subcutaneous [Recovered/Resolved]
